FAERS Safety Report 6997275-1 (Version None)
Quarter: 2010Q3

REPORT INFORMATION
  Report Type: 
  Country: None (occurrence: None)
  Receive Date: 20100918
  Receipt Date: 20090921
  Transmission Date: 20110219
  Serious: No
  Sender: FDA-Public Use
  Company Number: US-WYE-H11122809

PATIENT
  Sex: Female

DRUGS (7)
  1. PRISTIQ [Suspect]
     Indication: DEPRESSION
     Route: 048
     Dates: start: 20090811
  2. PROMETRIUM [Concomitant]
  3. ACETYLSALICYLIC ACID [Concomitant]
  4. MULTIVIT [Concomitant]
  5. FISH OIL, HYDROGENATED [Concomitant]
  6. ESTRADIOL [Concomitant]
  7. OMEPRAZOLE [Concomitant]

REACTIONS (2)
  - MUSCLE SPASMS [None]
  - MYALGIA [None]
